FAERS Safety Report 6234049-3 (Version None)
Quarter: 2009Q2

REPORT INFORMATION
  Report Type: 
  Country: None (occurrence: None)
  Receive Date: 20090618
  Receipt Date: 20090609
  Transmission Date: 20091009
  Serious: Yes (Other)
  Sender: FDA-Public Use
  Company Number: PHHY2009SI22754

PATIENT

DRUGS (1)
  1. LESCOL XL [Suspect]
     Indication: DYSLIPIDAEMIA
     Dosage: UNK
     Dates: start: 20080328

REACTIONS (1)
  - TRANSIENT ISCHAEMIC ATTACK [None]
